FAERS Safety Report 22146709 (Version 1)
Quarter: 2023Q1

REPORT INFORMATION
  Report Type: Spontaneous
  Country: US (occurrence: None)
  Receive Date: 20230327
  Receipt Date: 20230327
  Transmission Date: 20230417
  Serious: Yes (Life-Threatening, Hospitalization)
  Sender: FDA-Public Use
  Company Number: None

PATIENT
  Age: 67 Year
  Sex: Female
  Weight: 79 kg

DRUGS (1)
  1. IOPAMIDOL [Suspect]
     Active Substance: IOPAMIDOL
     Indication: Imaging procedure
     Dosage: OTHER FREQUENCY : ONCE;?
     Route: 042
     Dates: start: 20230310, end: 20230310

REACTIONS (7)
  - Contrast media reaction [None]
  - Unresponsive to stimuli [None]
  - Cardiac arrest [None]
  - Pulseless electrical activity [None]
  - Agonal respiration [None]
  - Anaphylactic reaction [None]
  - Bacteraemia [None]

NARRATIVE: CASE EVENT DATE: 20230310
